FAERS Safety Report 9180983 (Version 1)
Quarter: 2013Q1

REPORT INFORMATION
  Report Type: Spontaneous
  Country: GB (occurrence: None)
  Receive Date: 20130320
  Receipt Date: 20130320
  Transmission Date: 20140127
  Serious: Yes (Hospitalization, Other)
  Sender: FDA-Public Use
  Company Number: AUR-APL-2013-02277

PATIENT
  Age: 66 Year
  Sex: Female

DRUGS (4)
  1. METFORMIN (METFORMIN) [Suspect]
     Dosage: 2 GM (1 GM, 2 IN 1 D), UNKNOWN
  2. RAMIPRIL [Suspect]
  3. BENDROFLUMETHIAZIDE [Concomitant]
  4. SIMVASTATIN [Concomitant]

REACTIONS (22)
  - Lactic acidosis [None]
  - Hypothermia [None]
  - Hypotension [None]
  - Hypoglycaemia [None]
  - Hyperkalaemia [None]
  - Electrocardiogram P wave abnormal [None]
  - Electrocardiogram T wave abnormal [None]
  - Bradycardia [None]
  - Pulseless electrical activity [None]
  - Cardiac arrest [None]
  - Continuous haemodiafiltration [None]
  - Intestinal ischaemia [None]
  - Haemodynamic instability [None]
  - Dehydration [None]
  - Toxicity to various agents [None]
  - Sepsis [None]
  - Renal failure acute [None]
  - Anuria [None]
  - Diarrhoea [None]
  - Large intestine perforation [None]
  - Cardiovascular disorder [None]
  - No therapeutic response [None]
